FAERS Safety Report 5984379-5 (Version None)
Quarter: 2008Q4

REPORT INFORMATION
  Report Type: 
  Country: None (occurrence: None)
  Receive Date: 20081208
  Receipt Date: 20081203
  Transmission Date: 20090506
  Serious: Yes (Life-Threatening, Hospitalization, Other)
  Sender: FDA-Public Use
  Company Number: PHHY2008JP29885

PATIENT
  Age: 58 Year
  Sex: Male

DRUGS (1)
  1. GLEEVEC [Suspect]
     Indication: METASTASES TO LIVER
     Dosage: 400 MG/DAY
     Route: 048

REACTIONS (8)
  - ABSCESS DRAINAGE [None]
  - ANAEMIA [None]
  - DISCOMFORT [None]
  - LIVER ABSCESS [None]
  - LIVER CARCINOMA RUPTURED [None]
  - MALIGNANT NEOPLASM PROGRESSION [None]
  - PERITONEAL HAEMORRHAGE [None]
  - SHOCK [None]
